FAERS Safety Report 6245843-7 (Version None)
Quarter: 2009Q2

REPORT INFORMATION
  Report Type: 
  Country: None (occurrence: None)
  Receive Date: 20090626
  Receipt Date: 20090612
  Transmission Date: 20091009
  Serious: Yes (Other)
  Sender: FDA-Public Use
  Company Number: CA-RANBAXY-2009RR-24876

PATIENT
  Age: 59 Year
  Sex: Female

DRUGS (15)
  1. CLARITHROMYCIN [Suspect]
     Indication: BRONCHITIS
     Dosage: 500 MG, BID
  2. TACROLIMUS [Suspect]
     Indication: IMMUNOSUPPRESSION
     Dosage: 1.5 MG, BID
  3. MYCOPHENOLATE MOFETIL [Concomitant]
     Indication: IMMUNOSUPPRESSION
     Dosage: 500 MG, BID
  4. ATORVASTATIN CALCIUM [Concomitant]
     Dosage: 20 MG, QD
  5. CLOPIDOGREL [Concomitant]
     Dosage: 75 MG, QD
  6. ACETYLSALICYLIC ACID [Concomitant]
     Dosage: 81 MG, QD
  7. LEVOTHYROXINE SODIUM [Concomitant]
     Dosage: 0.025 MG, QD
  8. DILTIAZEM [Concomitant]
     Dosage: 240 MG, QD
  9. HYDROCHLOROTHIAZIDE [Concomitant]
     Dosage: 25 MG, QD
  10. QUINPARIL [Concomitant]
     Dosage: 5 MG, QD
  11. FOLIC ACID [Concomitant]
     Dosage: 5 MG, QD
  12. POTASSIUM CHLORIDE [Concomitant]
     Dosage: 20 MEQ, QD
  13. CALCIUM CARBONATE [Concomitant]
     Dosage: 800 MG, QD
  14. VITAMIN D [Concomitant]
     Dosage: 400 UL, QD
  15. GLUCOSAMINE [Concomitant]

REACTIONS (2)
  - DRUG INTERACTION [None]
  - NEPHROPATHY TOXIC [None]
